FAERS Safety Report 4886036-5 (Version None)
Quarter: 2006Q1

REPORT INFORMATION
  Report Type: 
  Country: None (occurrence: None)
  Receive Date: 20060117
  Receipt Date: 20051216
  Transmission Date: 20060701
  Serious: Yes (Death, Other)
  Sender: FDA-Public Use
  Company Number: MAG-2005-0000415

PATIENT
  Age: 70 Year
  Sex: Male

DRUGS (3)
  1. OXYCODONE HCL [Suspect]
     Dosage: 80 + 100 + 50  MG, DAILY, ORAL
     Route: 048
  2. OXYCODONE HCL [Suspect]
     Dosage: 80 + 100 + 50  MG, DAILY, ORAL
     Route: 048
  3. OXYCODONE HCL [Suspect]
     Dosage: 80 + 100 + 50  MG, DAILY, ORAL
     Route: 048

REACTIONS (17)
  - ALANINE AMINOTRANSFERASE INCREASED [None]
  - ASPARTATE AMINOTRANSFERASE INCREASED [None]
  - BLOOD ALBUMIN DECREASED [None]
  - BLOOD ALKALINE PHOSPHATASE INCREASED [None]
  - BLOOD BILIRUBIN INCREASED [None]
  - CARDIAC FAILURE CONGESTIVE [None]
  - CONSTIPATION [None]
  - DECUBITUS ULCER [None]
  - HAEMOGLOBIN DECREASED [None]
  - LUNG NEOPLASM MALIGNANT [None]
  - NAUSEA [None]
  - PROTEIN URINE PRESENT [None]
  - SKIN ULCER [None]
  - SOMNOLENCE [None]
  - UROBILIN URINE PRESENT [None]
  - VOMITING [None]
  - WHITE BLOOD CELL COUNT INCREASED [None]
